FAERS Safety Report 7124470-3 (Version None)
Quarter: 2010Q4

REPORT INFORMATION
  Report Type: 
  Country: None (occurrence: None)
  Receive Date: 20101126
  Receipt Date: 20101119
  Transmission Date: 20110411
  Serious: Yes (Death, Hospitalization)
  Sender: FDA-Public Use
  Company Number: US-ELI_LILLY_AND_COMPANY-US201011005880

PATIENT
  Sex: Male
  Weight: 79.365 kg

DRUGS (14)
  1. PEMETREXED [Suspect]
     Indication: NON-SMALL CELL LUNG CANCER
     Dosage: 500 MG/M2, EVERY 21 DAYS
     Route: 042
     Dates: start: 20100927, end: 20101018
  2. CARBOPLATIN [Suspect]
     Indication: NON-SMALL CELL LUNG CANCER
     Dosage: 6 AUC, EVERY 21 DAYS
     Route: 042
     Dates: start: 20100927, end: 20101018
  3. FOLIC ACID [Concomitant]
     Indication: PREMEDICATION
     Dosage: 1000 MG, DAILY (1/D)
     Route: 048
     Dates: start: 20100920
  4. VITAMIN B-12 [Concomitant]
     Indication: PREMEDICATION
     Dates: start: 20100920
  5. DEXAMETHASONE [Concomitant]
     Indication: PREMEDICATION
     Dosage: 4 MG, 2/D
     Route: 048
     Dates: start: 20100926
  6. ATROVENT [Concomitant]
     Indication: CHRONIC OBSTRUCTIVE PULMONARY DISEASE
     Dosage: 17 UG, AS NEEDED
     Route: 055
     Dates: start: 20100630
  7. LOVASTATIN [Concomitant]
     Indication: HYPERLIPIDAEMIA
     Dosage: 40 MG, DAILY (1/D)
     Route: 048
     Dates: start: 20090618
  8. ACETAMINOPHEN AND HYDROCODONE BITARTRATE [Concomitant]
     Indication: PAIN
     Dosage: UNK, DAILY (1/D)
     Route: 048
     Dates: start: 20100901
  9. RANITIDINE [Concomitant]
     Indication: REFLUX OESOPHAGITIS
     Dosage: 150 MG, AS NEEDED
     Route: 048
     Dates: start: 20100901
  10. FUROSEMIDE [Concomitant]
     Indication: OEDEMA
     Dosage: 40 MG, DAILY (1/D)
     Route: 048
     Dates: start: 20100801
  11. DILANTIN [Concomitant]
     Indication: CONVULSION
     Dosage: 100 MG, 3/D
     Dates: start: 20100801, end: 20101027
  12. DILANTIN [Concomitant]
     Dosage: 100 MG, 2/D
     Dates: start: 20101027
  13. TYLENOL                                 /SCH/ [Concomitant]
     Indication: PAIN
     Dosage: 650 MG, AS NEEDED
     Route: 054
  14. DRONABINOL [Concomitant]
     Dosage: 5 MG, 3/D
     Route: 048

REACTIONS (2)
  - DEATH [None]
  - DYSPNOEA [None]
